FAERS Safety Report 8567406-0 (Version None)
Quarter: 2012Q3

REPORT INFORMATION
  Report Type: 
  Country: None (occurrence: None)
  Receive Date: 20120803
  Receipt Date: 20120727
  Transmission Date: 20120928
  Serious: Yes (Other)
  Sender: FDA-Public Use
  Company Number: PHHY2011CA53531

PATIENT
  Sex: Female

DRUGS (1)
  1. GILENYA [Suspect]
     Indication: RELAPSING-REMITTING MULTIPLE SCLEROSIS
     Dosage: 0.5 MG/ DAILY
     Route: 048
     Dates: start: 20110530, end: 20120726

REACTIONS (13)
  - LYMPHOCYTE COUNT DECREASED [None]
  - MULTIPLE SCLEROSIS RELAPSE [None]
  - FUNGAL INFECTION [None]
  - NASOPHARYNGITIS [None]
  - ANGINA PECTORIS [None]
  - TINEA INFECTION [None]
  - HERPES ZOSTER [None]
  - SENSATION OF HEAVINESS [None]
  - WHITE BLOOD CELL COUNT DECREASED [None]
  - DIZZINESS [None]
  - DYSPNOEA [None]
  - CHEST DISCOMFORT [None]
  - LARYNGITIS [None]
